FAERS Safety Report 17460239 (Version 2)
Quarter: 2020Q1

REPORT INFORMATION
  Report Type: Spontaneous
  Country: US (occurrence: US)
  Receive Date: 20200226
  Receipt Date: 20200303
  Transmission Date: 20200409
  Serious: Yes (Other)
  Sender: FDA-Public Use
  Company Number: US-PFIZER INC-2020081212

PATIENT
  Age: 77 Year
  Sex: Female
  Weight: 59.87 kg

DRUGS (1)
  1. ADVIL [Suspect]
     Active Substance: IBUPROFEN
     Dosage: 10 DF, DAILY [10 ADVIL PER DAY]

REACTIONS (2)
  - Overdose [Unknown]
  - Renal disorder [Unknown]
